FAERS Safety Report 8105636-2 (Version None)
Quarter: 2012Q1

REPORT INFORMATION
  Report Type: 
  Country: None (occurrence: None)
  Receive Date: 20120201
  Receipt Date: 20120123
  Transmission Date: 20120608
  Serious: Yes (Other)
  Sender: FDA-Public Use
  Company Number: FR-ASTRAZENECA-2011SE18417

PATIENT
  Sex: Male

DRUGS (6)
  1. NEXIUM [Suspect]
     Route: 048
  2. INDOMETHACIN [Suspect]
     Route: 048
  3. REMICADE [Suspect]
     Dosage: 500 MILLIGRAMS EVERY 5 TO 6 WEEKS
     Route: 042
     Dates: start: 20050101
  4. METHOTREXATE [Suspect]
     Route: 048
  5. METHOTREXATE [Suspect]
     Route: 048
     Dates: start: 20070101
  6. FOLIC ACID [Suspect]
     Route: 048

REACTIONS (2)
  - DEMYELINATING POLYNEUROPATHY [None]
  - PERIPHERAL SENSORY NEUROPATHY [None]
